FAERS Safety Report 6542416-3 (Version None)
Quarter: 2010Q1

REPORT INFORMATION
  Report Type: 
  Country: None (occurrence: None)
  Receive Date: 20100114
  Receipt Date: 20100114
  Transmission Date: 20100710
  Serious: Yes (Other)
  Sender: FDA-Public Use
  Company Number: None

PATIENT
  Age: 68 Year
  Sex: Female
  Weight: 80.7403 kg

DRUGS (1)
  1. ZICAM NO-DRIP LIQUID NASAL GEL 0.50 FL. OZ/15 ML ZICAM LLC - SUB OF MA [Suspect]
     Indication: NASOPHARYNGITIS
     Dosage: ONCE IN EACH NOSTRIL EVERY 4 HOURS NASAL
     Route: 045
     Dates: start: 20080201, end: 20080430

REACTIONS (4)
  - ANOSMIA [None]
  - HYPOGEUSIA [None]
  - LACRIMATION INCREASED [None]
  - NASAL DISCOMFORT [None]
